FAERS Safety Report 25814512 (Version 3)
Quarter: 2025Q3

REPORT INFORMATION
  Report Type: Spontaneous
  Country: EU (occurrence: EU)
  Receive Date: 20250917
  Receipt Date: 20250917
  Transmission Date: 20251021
  Serious: Yes (Disabling)
  Sender: VERITY PHARMACEUTICALS INC.
  Company Number: EU-VER-202200012

PATIENT
  Age: 11 Year
  Sex: Female

DRUGS (4)
  1. TRIPTORELIN PAMOATE [Suspect]
     Active Substance: TRIPTORELIN PAMOATE
     Indication: Precocious puberty
     Route: 030
     Dates: start: 20220222, end: 20220517
  2. TRIPTORELIN PAMOATE [Suspect]
     Active Substance: TRIPTORELIN PAMOATE
     Indication: Precocious puberty
     Route: 030
     Dates: start: 20200409, end: 20210216
  3. TRIPTORELIN ACETATE [Suspect]
     Active Substance: TRIPTORELIN ACETATE
     Indication: Precocious puberty
     Route: 030
     Dates: start: 20220203, end: 20220316
  4. BUSERELIN ACETATE [Suspect]
     Active Substance: BUSERELIN ACETATE
     Indication: Precocious puberty
     Route: 058
     Dates: start: 20210316, end: 20211125

REACTIONS (1)
  - Epiphysiolysis [Not Recovered/Not Resolved]

NARRATIVE: CASE EVENT DATE: 20220611
